FAERS Safety Report 19475916 (Version 1)
Quarter: 2021Q2

REPORT INFORMATION
  Report Type: Report from Study
  Country: US (occurrence: US)
  Receive Date: 20210630
  Receipt Date: 20210630
  Transmission Date: 20210717
  Serious: Yes (Death)
  Sender: FDA-Public Use
  Company Number: US-TAIHO ONCOLOGY  INC-EU-2021-02042

PATIENT
  Age: 84 Year
  Sex: Male

DRUGS (4)
  1. MEGESTROL AC [Concomitant]
  2. DRONABINOL. [Concomitant]
     Active Substance: DRONABINOL
  3. ONDANSETRON [Concomitant]
     Active Substance: ONDANSETRON
  4. LONSURF [Suspect]
     Active Substance: TIPIRACIL HYDROCHLORIDE\TRIFLURIDINE
     Indication: COLON CANCER
     Dosage: CURRENT CYCLE UNKNOWN.
     Route: 048
     Dates: start: 20210408, end: 20210610

REACTIONS (1)
  - Death [Fatal]

NARRATIVE: CASE EVENT DATE: 20210610
